FAERS Safety Report 26112128 (Version 1)
Quarter: 2025Q4

REPORT INFORMATION
  Report Type: Spontaneous
  Country: US (occurrence: US)
  Receive Date: 20251202
  Receipt Date: 20251202
  Transmission Date: 20260118
  Serious: Yes (Other)
  Sender: JOHNSON AND JOHNSON
  Company Number: US-VIIV HEALTHCARE-US2025AMR153225

PATIENT
  Age: 43 Year
  Sex: Male
  Weight: 101.5 kg

DRUGS (4)
  1. CABENUVA [Suspect]
     Active Substance: CABOTEGRAVIR\RILPIVIRINE
     Indication: HIV infection
     Dosage: UNK 600-900MG
     Route: 030
     Dates: start: 20240117
  2. CABENUVA [Suspect]
     Active Substance: CABOTEGRAVIR\RILPIVIRINE
     Indication: HIV infection
     Dosage: UNK 600-900MG
     Route: 030
     Dates: start: 20240117
  3. LENACAPAVIR [Suspect]
     Active Substance: LENACAPAVIR
     Indication: HIV infection
     Dosage: 927 MG
     Route: 058
     Dates: start: 20240117
  4. TROGARZO [Concomitant]
     Active Substance: IBALIZUMAB-UIYK
     Indication: HIV infection
     Dosage: UNK

REACTIONS (3)
  - Blood HIV RNA increased [Recovered/Resolved]
  - Product use in unapproved therapeutic environment [Unknown]
  - Labelled drug-drug interaction medication error [Unknown]

NARRATIVE: CASE EVENT DATE: 20240117
